FAERS Safety Report 6942475-X (Version None)
Quarter: 2010Q3

REPORT INFORMATION
  Report Type: 
  Country: None (occurrence: None)
  Receive Date: 20100826
  Receipt Date: 20100811
  Transmission Date: 20110219
  Serious: No
  Sender: FDA-Public Use
  Company Number: US-B.I. PHARMACEUTICALS,INC./RIDGEFIELD-2010-BP-09089BP

PATIENT
  Sex: Male

DRUGS (2)
  1. AGGRENOX [Suspect]
     Indication: CEREBROVASCULAR ACCIDENT
     Dosage: 25MG/200MG; ONE BID
     Route: 048
     Dates: start: 20100601
  2. ACETAMINOPHEN [Concomitant]
     Indication: OSTEOARTHRITIS

REACTIONS (1)
  - INHIBITORY DRUG INTERACTION [None]
